FAERS Safety Report 7865144-0 (Version None)
Quarter: 2011Q4

REPORT INFORMATION
  Report Type: 
  Country: None (occurrence: None)
  Receive Date: 20111028
  Receipt Date: 20101021
  Transmission Date: 20120403
  Serious: No
  Sender: FDA-Public Use
  Company Number: US-GLAXOSMITHKLINE-A0888039A

PATIENT
  Age: 59 Year
  Sex: Female

DRUGS (3)
  1. MERIDIA [Concomitant]
  2. ADVAIR DISKUS 100/50 [Suspect]
     Indication: MULTIPLE ALLERGIES
     Dosage: 1PUFF TWICE PER DAY
     Route: 055
     Dates: start: 20100701
  3. ENABLEX [Concomitant]

REACTIONS (3)
  - UPPER-AIRWAY COUGH SYNDROME [None]
  - THROAT IRRITATION [None]
  - PRODUCT QUALITY ISSUE [None]
